FAERS Safety Report 23455025 (Version 3)
Quarter: 2024Q1

REPORT INFORMATION
  Report Type: Spontaneous
  Country: FR (occurrence: FR)
  Receive Date: 20240130
  Receipt Date: 20240329
  Transmission Date: 20240409
  Serious: Yes (Hospitalization, Other)
  Sender: FDA-Public Use
  Company Number: FR-AFSSAPS-GR2024000047

PATIENT
  Age: 62 Year
  Sex: Male

DRUGS (2)
  1. ACETAMINOPHEN [Suspect]
     Active Substance: ACETAMINOPHEN
     Indication: Intentional overdose
     Dosage: 40 GRAM, 1 TOTAL
     Route: 048
     Dates: start: 20231214, end: 20231214
  2. MORPHINE SULFATE [Suspect]
     Active Substance: MORPHINE SULFATE
     Indication: Intentional overdose
     Dosage: 980 MILLIGRAM, 1 TOTAL
     Route: 048
     Dates: start: 20231216, end: 20231216

REACTIONS (6)
  - Acute kidney injury [Recovering/Resolving]
  - Hepatic cytolysis [Recovering/Resolving]
  - Rhabdomyolysis [Recovering/Resolving]
  - Bradypnoea [Recovering/Resolving]
  - Metabolic acidosis [Recovering/Resolving]
  - Poisoning deliberate [Recovered/Resolved]

NARRATIVE: CASE EVENT DATE: 20231214
